FAERS Safety Report 6235679-5 (Version None)
Quarter: 2009Q2

REPORT INFORMATION
  Report Type: 
  Country: None (occurrence: None)
  Receive Date: 20090616
  Receipt Date: 20090611
  Transmission Date: 20091009
  Serious: Yes (Hospitalization)
  Sender: FDA-Public Use
  Company Number: SPV1-2009-01170

PATIENT
  Age: 35 Year
  Sex: Male
  Weight: 79.4 kg

DRUGS (3)
  1. PENTASA [Suspect]
     Indication: CROHN'S DISEASE
     Dosage: 500 MG, 1X/DAY; QD ORAL
     Route: 048
     Dates: start: 20080301, end: 20080601
  2. ELAVIL [Concomitant]
  3. TRANXENE [Concomitant]

REACTIONS (4)
  - ABASIA [None]
  - DRUG INEFFECTIVE [None]
  - OFF LABEL USE [None]
  - WEIGHT DECREASED [None]
